FAERS Safety Report 19183435 (Version 2)
Quarter: 2021Q3

REPORT INFORMATION
  Report Type: Spontaneous
  Country: CH (occurrence: CH)
  Receive Date: 20210427
  Receipt Date: 20210809
  Transmission Date: 20211014
  Serious: Yes (Hospitalization, Other)
  Sender: FDA-Public Use
  Company Number: CH-LUPIN PHARMACEUTICALS INC.-2021-05379

PATIENT
  Age: 28 Year
  Sex: Male

DRUGS (8)
  1. BISOPROLOL [Concomitant]
     Active Substance: BISOPROLOL
     Indication: HYPERTENSION
     Dosage: UNK
     Route: 065
  2. BROMAZEPAM [Concomitant]
     Active Substance: BROMAZEPAM
     Indication: NERVOUSNESS
     Dosage: UNK
     Route: 065
  3. THYBON [Concomitant]
     Active Substance: LIOTHYRONINE HYDROCHLORIDE
     Indication: HORMONE REPLACEMENT THERAPY
     Dosage: UNK
     Route: 065
  4. TESTOSTERONE. [Suspect]
     Active Substance: TESTOSTERONE
     Indication: MUSCLE BUILDING THERAPY
     Dosage: UNK
     Route: 048
  5. NOVOTHYRAL [Concomitant]
     Active Substance: LEVOTHYROXINE SODIUM\LIOTHYRONINE SODIUM
     Indication: HORMONE REPLACEMENT THERAPY
     Dosage: UNK
     Route: 065
  6. EPHEDRINE. [Concomitant]
     Active Substance: EPHEDRINE
     Indication: PRODUCT USED FOR UNKNOWN INDICATION
     Dosage: UNK
     Route: 065
  7. BISOPROLOL [Concomitant]
     Active Substance: BISOPROLOL
     Dosage: UNK (LATER DOSE INCREASED)
     Route: 065
  8. TAXOFIT [Concomitant]
     Active Substance: MINERALS\VITAMINS
     Indication: HYPOTHYROIDISM
     Dosage: 150 MICROGRAM
     Route: 065

REACTIONS (9)
  - Blood follicle stimulating hormone decreased [Recovered/Resolved]
  - Intentional product misuse [Unknown]
  - Diplegia [Recovered/Resolved]
  - Hypokalaemia [Recovered/Resolved]
  - Atrioventricular block [Recovering/Resolving]
  - Guillain-Barre syndrome [Recovered/Resolved]
  - Electrocardiogram ST segment depression [Recovering/Resolving]
  - Blood luteinising hormone decreased [Recovered/Resolved]
  - Electrocardiogram QRS complex prolonged [Recovering/Resolving]
